FAERS Safety Report 5017544-4 (Version None)
Quarter: 2006Q2

REPORT INFORMATION
  Report Type: 
  Country: None (occurrence: None)
  Receive Date: 20060601
  Receipt Date: 20060601
  Transmission Date: 20061013
  Serious: Yes (Other)
  Sender: FDA-Public Use
  Company Number: None

PATIENT
  Sex: Male
  Weight: 87.9978 kg

DRUGS (1)
  1. ZICAM COLD REMEDY SWAB [Suspect]
     Indication: NASOPHARYNGITIS
     Dosage: ONE SWAB TWICE NASAL
     Route: 045
     Dates: start: 20060521, end: 20060522

REACTIONS (2)
  - AGEUSIA [None]
  - ANOSMIA [None]
